FAERS Safety Report 10311995 (Version 2)
Quarter: 2014Q3

REPORT INFORMATION
  Report Type: Spontaneous
  Country: CH (occurrence: None)
  Receive Date: 20140714
  Receipt Date: 20140829
  Transmission Date: 20150326
  Serious: Yes (Life-Threatening, Hospitalization)
  Sender: FDA-Public Use
  Company Number: 20140407

PATIENT
  Age: 70 Year
  Sex: Female
  Weight: 65 kg

DRUGS (2)
  1. FERINJECT [Suspect]
     Active Substance: FERRIC CARBOXYMALTOSE
     Indication: ANAEMIA
     Dosage: 500 MG IN NACL OVER 30 MINUTES
     Route: 041
     Dates: start: 20140512, end: 20140512
  2. FERINJECT [Suspect]
     Active Substance: FERRIC CARBOXYMALTOSE
     Indication: ANAEMIA
     Dosage: 5 ML OVER 1 MINUTE
     Route: 041
     Dates: start: 20140519, end: 20140519

REACTIONS (4)
  - Hypersensitivity [None]
  - Apparent life threatening event [None]
  - Shock [None]
  - Circulatory collapse [None]

NARRATIVE: CASE EVENT DATE: 20140519
